FAERS Safety Report 9572520 (Version 1)
Quarter: 2013Q4

REPORT INFORMATION
  Report Type: Report from Study
  Country: CA (occurrence: CA)
  Receive Date: 20131001
  Receipt Date: 20131001
  Transmission Date: 20140711
  Serious: Yes (Hospitalization)
  Sender: FDA-Public Use
  Company Number: CA-JNJFOC-20130917760

PATIENT
  Age: 45 Year
  Sex: Female
  Weight: 79.5 kg

DRUGS (6)
  1. REMICADE [Suspect]
     Indication: COLITIS ULCERATIVE
     Route: 042
     Dates: start: 20130123
  2. MEZAVANT [Concomitant]
     Route: 065
  3. SALOFALK [Concomitant]
     Route: 065
  4. PARIET [Concomitant]
     Route: 065
  5. BUSCOPAN [Concomitant]
     Route: 065
  6. GRAVOL [Concomitant]
     Route: 065

REACTIONS (4)
  - Haematochezia [Unknown]
  - Joint stiffness [Unknown]
  - Pain in jaw [Unknown]
  - Blood count abnormal [Unknown]
